FAERS Safety Report 12428521 (Version 1)
Quarter: 2016Q2

REPORT INFORMATION
  Report Type: Spontaneous
  Country: US (occurrence: None)
  Receive Date: 20160601
  Receipt Date: 20160601
  Transmission Date: 20160815
  Serious: Yes (Hospitalization)
  Sender: FDA-Public Use
  Company Number: None

PATIENT
  Age: 80 Year
  Sex: Male
  Weight: 120.1 kg

DRUGS (2)
  1. ATORVASTATIN [Suspect]
     Active Substance: ATORVASTATIN
     Indication: DIURETIC THERAPY
     Route: 048
     Dates: start: 20151113, end: 20160201
  2. ATORVASTATIN [Suspect]
     Active Substance: ATORVASTATIN
     Indication: HYPERLIPIDAEMIA
     Route: 048
     Dates: start: 20151113, end: 20160201

REACTIONS (16)
  - Pruritus [None]
  - Protein urine present [None]
  - Swelling [None]
  - Nephropathy [None]
  - Renal function test abnormal [None]
  - Discomfort [None]
  - Rash erythematous [None]
  - Rash papular [None]
  - Glucose urine present [None]
  - Haematuria [None]
  - Tubulointerstitial nephritis [None]
  - Eosinophil count increased [None]
  - Rash pruritic [None]
  - Peripheral swelling [None]
  - Erythema [None]
  - Thirst [None]

NARRATIVE: CASE EVENT DATE: 20160203
